FAERS Safety Report 9484177 (Version 3)
Quarter: 2013Q3

REPORT INFORMATION
  Report Type: Spontaneous
  Country: CA (occurrence: CA)
  Receive Date: 20130828
  Receipt Date: 20130930
  Transmission Date: 20140515
  Serious: Yes (Death)
  Sender: FDA-Public Use
  Company Number: CA-US-EMD SERONO, INC.-7233235

PATIENT
  Sex: Female
  Weight: 26 kg

DRUGS (4)
  1. SAIZEN [Suspect]
     Indication: HYPERTONIA
     Route: 058
     Dates: start: 20100120
  2. SAIZEN [Suspect]
     Indication: GROWTH HORMONE DEFICIENCY
  3. KEPPRA [Suspect]
     Indication: EPILEPSY
     Dosage: 250-375-375
     Route: 048
     Dates: start: 2008
  4. VALPROIC ACID [Suspect]
     Indication: EPILEPSY
     Route: 048
     Dates: start: 2011

REACTIONS (1)
  - Status epilepticus [Fatal]
